FAERS Safety Report 4424980-3 (Version None)
Quarter: 2004Q3

REPORT INFORMATION
  Report Type: 
  Country: None (occurrence: None)
  Receive Date: 20040809
  Receipt Date: 20040729
  Transmission Date: 20050211
  Serious: Yes (Other)
  Sender: FDA-Public Use
  Company Number: NSADSS2001027430

PATIENT
  Age: 5 Year
  Sex: Male
  Weight: 16.6 kg

DRUGS (6)
  1. CISAPRIDE (CISAPRIDE) SUSPENSION [Suspect]
     Indication: GASTROOESOPHAGEAL REFLUX DISEASE
     Dosage: 2.8 MG, 4 IN 1 DAY, ORAL
     Route: 048
     Dates: start: 20010325, end: 20010831
  2. ZANTAC [Concomitant]
  3. REGLAN [Concomitant]
  4. SINGULAIR [Concomitant]
  5. ZYRTEC [Concomitant]
  6. PERIACTIN [Concomitant]

REACTIONS (4)
  - ELECTROCARDIOGRAM QT CORRECTED INTERVAL PROLONGED [None]
  - HEART RATE INCREASED [None]
  - MYOCARDITIS [None]
  - VENTRICULAR EXTRASYSTOLES [None]
